FAERS Safety Report 8796583 (Version 1)
Quarter: 2012Q4

REPORT INFORMATION
  Report Type: 
  Country: NG (occurrence: NG)
  Receive Date: 20120919
  Receipt Date: 20120919
  Transmission Date: 20130627
  Serious: Yes (Death)
  Sender: FDA-Public Use
  Company Number: PHHY2010NG094529

PATIENT
  Sex: Male

DRUGS (1)
  1. GLIVEC [Suspect]
     Indication: CHRONIC MYELOID LEUKAEMIA
     Dates: start: 20090223

REACTIONS (2)
  - Acute graft versus host disease [Fatal]
  - Stem cell transplant [None]
